FAERS Safety Report 23223626 (Version 1)
Quarter: 2023Q4

REPORT INFORMATION
  Report Type: Spontaneous
  Country: CN (occurrence: CN)
  Receive Date: 20231124
  Receipt Date: 20231124
  Transmission Date: 20240109
  Serious: Yes (Disabling, Other)
  Sender: FDA-Public Use
  Company Number: None

PATIENT
  Age: 75 Year
  Sex: Male
  Weight: 70 kg

DRUGS (17)
  1. CYCLOPHOSPHAMIDE [Suspect]
     Active Substance: CYCLOPHOSPHAMIDE
     Indication: Acute lymphocytic leukaemia
     Dosage: 0.6 G, ONCE
     Route: 041
     Dates: start: 20231021, end: 20231021
  2. OMEPRAZOLE [Suspect]
     Active Substance: OMEPRAZOLE
     Indication: Gastrointestinal disorder prophylaxis
     Dosage: 20 MG, BID, ENTERIC COATED
     Route: 048
     Dates: start: 20231011, end: 20231018
  3. VINDESINE SULFATE [Suspect]
     Active Substance: VINDESINE SULFATE
     Indication: Acute lymphocytic leukaemia
     Dosage: 2.0 MG, ONCE
     Route: 041
     Dates: start: 20231021, end: 20231021
  4. AMLODIPINE BESYLATE [Suspect]
     Active Substance: AMLODIPINE BESYLATE
     Indication: Hypertension
     Dosage: 5 MG, QM
     Route: 048
     Dates: start: 20231007, end: 20231023
  5. SPIRONOLACTONE [Suspect]
     Active Substance: SPIRONOLACTONE
     Indication: Hypovolaemia
     Dosage: 20 MG, BID
     Route: 048
     Dates: start: 20231006, end: 20231018
  6. SPIRONOLACTONE [Suspect]
     Active Substance: SPIRONOLACTONE
     Indication: Cardiac disorder
     Dosage: 20 MG, BID
     Route: 048
     Dates: start: 20231008
  7. SPIRONOLACTONE [Suspect]
     Active Substance: SPIRONOLACTONE
     Indication: Cardiac failure
     Dosage: 20 MG, BID
     Route: 048
     Dates: start: 20231011
  8. FEBUXOSTAT [Suspect]
     Active Substance: FEBUXOSTAT
     Indication: Hyperuricaemia
     Dosage: 40 MG, QD
     Route: 048
     Dates: start: 20231006, end: 20231026
  9. FUROSEMIDE [Suspect]
     Active Substance: FUROSEMIDE
     Indication: Hypovolaemia
     Dosage: 20 MG, QD
     Route: 048
     Dates: start: 20231006, end: 20231008
  10. FUROSEMIDE [Suspect]
     Active Substance: FUROSEMIDE
     Indication: Cardiac disorder
  11. CELECOXIB [Suspect]
     Active Substance: CELECOXIB
     Indication: Antiinflammatory therapy
     Dosage: 0.2 G, QD
     Route: 048
     Dates: start: 20231006, end: 20231014
  12. CELECOXIB [Suspect]
     Active Substance: CELECOXIB
     Indication: Analgesic therapy
  13. CELECOXIB [Suspect]
     Active Substance: CELECOXIB
     Indication: Hyperuricaemia
  14. ETHAMSYLATE [Suspect]
     Active Substance: ETHAMSYLATE
     Indication: Acute lymphocytic leukaemia
     Dosage: 1.5 G, ONE TIME IN ONE DAY
     Route: 041
     Dates: start: 20231006, end: 20231026
  15. FUROSEMIDE [Suspect]
     Active Substance: FUROSEMIDE
     Indication: Hypovolaemia
     Dosage: 20 MG, QD
     Route: 042
     Dates: start: 20231008, end: 20231011
  16. FUROSEMIDE [Suspect]
     Active Substance: FUROSEMIDE
     Indication: Cardiac disorder
     Dosage: 20 MG, BID
     Route: 042
     Dates: start: 20231011, end: 20231026
  17. FUROSEMIDE [Suspect]
     Active Substance: FUROSEMIDE
     Indication: Cardiac failure

REACTIONS (17)
  - Myelosuppression [Not Recovered/Not Resolved]
  - Dyspnoea [Unknown]
  - Granulocyte count decreased [Unknown]
  - Pyrexia [Unknown]
  - Acute lymphocytic leukaemia [Unknown]
  - Condition aggravated [Unknown]
  - Renal failure [Unknown]
  - Cardiac failure [Unknown]
  - Condition aggravated [Unknown]
  - Chest discomfort [Unknown]
  - Hyperuricaemia [Unknown]
  - Condition aggravated [Unknown]
  - Haemoptysis [Unknown]
  - Infection [Unknown]
  - Confusional state [Unknown]
  - Anaemia [Unknown]
  - Hypertension [Unknown]

NARRATIVE: CASE EVENT DATE: 20231022
